FAERS Safety Report 4678093-6 (Version None)
Quarter: 2005Q2

REPORT INFORMATION
  Report Type: 
  Country: None (occurrence: None)
  Receive Date: 20050531
  Receipt Date: 20050531
  Transmission Date: 20051028
  Serious: No
  Sender: FDA-Public Use
  Company Number: None

PATIENT
  Age: 35 Year
  Sex: Male
  Weight: 83.9154 kg

DRUGS (1)
  1. FLUOXETINE [Suspect]
     Indication: DEPRESSION
     Dosage: 40MG   EVERY DAY    ORAL
     Route: 048

REACTIONS (5)
  - ANXIETY [None]
  - DEPRESSION [None]
  - DISEASE RECURRENCE [None]
  - PHARMACEUTICAL PRODUCT COMPLAINT [None]
  - THERAPEUTIC RESPONSE UNEXPECTED WITH DRUG SUBSTITUTION [None]
